FAERS Safety Report 9014701 (Version 1)
Quarter: 2013Q1

REPORT INFORMATION
  Report Type: Spontaneous
  Country: US (occurrence: US)
  Receive Date: 20130115
  Receipt Date: 20130115
  Transmission Date: 20140127
  Serious: Yes (Disabling, Other)
  Sender: FDA-Public Use
  Company Number: CHPA2013US000572

PATIENT
  Age: 60 Year
  Sex: Female

DRUGS (3)
  1. MYOFLEX ANALGESIC CREME [Suspect]
     Indication: RESTLESS LEGS SYNDROME
     Dosage: AS DIRECTED
     Route: 061
     Dates: start: 1979
  2. MYOFLEX ANALGESIC CREME [Suspect]
     Dosage: AS DIRECTED
     Route: 061
     Dates: start: 1979
  3. DRUG THERAPY NOS [Concomitant]
     Indication: RENAL DISORDER
     Dosage: UNK, UNK
     Route: 048

REACTIONS (16)
  - Abasia [Not Recovered/Not Resolved]
  - Wheelchair user [Not Recovered/Not Resolved]
  - Multiple sclerosis [Not Recovered/Not Resolved]
  - Type 1 diabetes mellitus [Recovered/Resolved]
  - Grand mal convulsion [Unknown]
  - Rotator cuff syndrome [Not Recovered/Not Resolved]
  - Carpal tunnel syndrome [Not Recovered/Not Resolved]
  - Pain [Not Recovered/Not Resolved]
  - Muscular weakness [Not Recovered/Not Resolved]
  - Fall [Recovered/Resolved]
  - Gait disturbance [Not Recovered/Not Resolved]
  - Musculoskeletal stiffness [Not Recovered/Not Resolved]
  - Somnolence [Unknown]
  - Blood glucose increased [Unknown]
  - Therapeutic response unexpected [Unknown]
  - Off label use [Unknown]
